FAERS Safety Report 7204880-6 (Version None)
Quarter: 2010Q4

REPORT INFORMATION
  Report Type: 
  Country: None (occurrence: None)
  Receive Date: 20101230
  Receipt Date: 20101227
  Transmission Date: 20110411
  Serious: Yes (Death, Hospitalization, Other)
  Sender: FDA-Public Use
  Company Number: PHHY2010JP77689

PATIENT
  Sex: Male

DRUGS (7)
  1. AFINITOR [Suspect]
     Indication: RENAL CELL CARCINOMA
     Dosage: 10 MG DAILY
     Route: 048
     Dates: start: 20100629, end: 20100823
  2. SUMIFERON [Concomitant]
     Indication: METASTATIC RENAL CELL CARCINOMA
     Dosage: 3000000IU, UNK
     Dates: start: 20100317, end: 20100627
  3. SORAFENIB TOSILATE [Concomitant]
     Indication: METASTATIC RENAL CELL CARCINOMA
     Dosage: 400 MG, UNK
     Route: 048
     Dates: start: 20100628, end: 20100628
  4. SOL-MELCORT [Concomitant]
     Dosage: 500 MG, UNK
     Dates: start: 20100825
  5. SOL-MELCORT [Concomitant]
     Dosage: 125 MG, UNK
  6. SOL-MELCORT [Concomitant]
     Dosage: 40 MG, UNK
     Dates: end: 20100906
  7. PREDONINE [Concomitant]
     Dosage: 15 MG, UNK
     Dates: start: 20100907, end: 20100919

REACTIONS (9)
  - ANAEMIA [None]
  - BLOOD CREATININE INCREASED [None]
  - BLOOD UREA INCREASED [None]
  - BLOOD URIC ACID INCREASED [None]
  - INTERSTITIAL LUNG DISEASE [None]
  - MALIGNANT NEOPLASM PROGRESSION [None]
  - OEDEMA PERIPHERAL [None]
  - PALPITATIONS [None]
  - RESPIRATORY DISORDER [None]
